FAERS Safety Report 9334873 (Version 1)
Quarter: 2013Q2

REPORT INFORMATION
  Report Type: Spontaneous
  Country: US (occurrence: US)
  Receive Date: 20130606
  Receipt Date: 20130606
  Transmission Date: 20140414
  Serious: No
  Sender: FDA-Public Use
  Company Number: US-009507513-1306USA001244

PATIENT
  Sex: Female

DRUGS (2)
  1. TIMOPTIC [Suspect]
     Indication: INTRAOCULAR PRESSURE TEST
     Dosage: 1 DROP IN EACH EYE, ONCE DAILY
     Route: 031
     Dates: start: 2011
  2. LORAZEPAM [Concomitant]
     Dosage: 1 MG, QD

REACTIONS (2)
  - Eye irritation [Recovering/Resolving]
  - Somnolence [Recovering/Resolving]
